FAERS Safety Report 8510700-X (Version None)
Quarter: 2012Q3

REPORT INFORMATION
  Report Type: 
  Country: None (occurrence: None)
  Receive Date: 20120709
  Receipt Date: 20120709
  Transmission Date: 20120928
  Serious: No
  Sender: FDA-Public Use
  Company Number: None

PATIENT
  Sex: Male

DRUGS (2)
  1. NOVOLOG MIX 70/30 [Suspect]
  2. NOVOLOG [Suspect]

REACTIONS (5)
  - MALAISE [None]
  - MEDICATION ERROR [None]
  - DRUG DISPENSING ERROR [None]
  - BLOOD GLUCOSE DECREASED [None]
  - WRONG DRUG ADMINISTERED [None]
